FAERS Safety Report 5684287-3 (Version None)
Quarter: 2008Q1

REPORT INFORMATION
  Report Type: 
  Country: None (occurrence: None)
  Receive Date: 20080328
  Receipt Date: 20080328
  Transmission Date: 20080703
  Serious: Yes (Other)
  Sender: FDA-Public Use
  Company Number: A0717997A

PATIENT

DRUGS (1)
  1. ALLI [Suspect]
     Indication: WEIGHT LOSS DIET
     Route: 048
     Dates: start: 20080201

REACTIONS (6)
  - ABNORMAL FAECES [None]
  - ANAL HAEMORRHAGE [None]
  - ANORECTAL DISCOMFORT [None]
  - FLATULENCE [None]
  - RECTAL DISCHARGE [None]
  - STEATORRHOEA [None]
